FAERS Safety Report 10276793 (Version 1)
Quarter: 2014Q3

REPORT INFORMATION
  Report Type: Report from Study
  Country: GB (occurrence: GB)
  Receive Date: 20140703
  Receipt Date: 20140703
  Transmission Date: 20150326
  Serious: Yes (Death, Other)
  Sender: FDA-Public Use
  Company Number: GB-BAYER-2014-100155

PATIENT
  Age: 64 Year
  Sex: Female

DRUGS (2)
  1. AMOXICILLIN. [Suspect]
     Active Substance: AMOXICILLIN
     Indication: OSTEOMYELITIS BACTERIAL
  2. CIPROFLOXACIN MONOHYDROCHLORIDE [Suspect]
     Active Substance: CIPROFLOXACIN
     Indication: OSTEOMYELITIS BACTERIAL
     Dosage: UNK
     Route: 048

REACTIONS (2)
  - Pathogen resistance [None]
  - Treatment failure [Fatal]
